FAERS Safety Report 9457835 (Version 1)
Quarter: 2013Q3

REPORT INFORMATION
  Report Type: Spontaneous
  Country: US (occurrence: None)
  Receive Date: 20130809
  Receipt Date: 20130809
  Transmission Date: 20140515
  Serious: Yes (Hospitalization)
  Sender: FDA-Public Use
  Company Number: 130251

PATIENT
  Age: 43 Year
  Sex: Male
  Weight: 87.09 kg

DRUGS (26)
  1. GOLYTELY [Suspect]
     Indication: OFF LABEL USE
     Dates: start: 201207
  2. METHOTREXATE [Concomitant]
  3. PREDNISONE [Concomitant]
  4. FOLIC ACID [Concomitant]
  5. ZYRTEC [Concomitant]
  6. RHINOCORT [Concomitant]
  7. NEXIUM [Concomitant]
  8. HYDROCODONE [Concomitant]
  9. ALEDNRONATE SODIUM [Concomitant]
  10. FLONASE [Concomitant]
  11. ALLERGY INJECTIONS [Concomitant]
  12. LOSARTAN [Concomitant]
  13. PANTOPRAZOLE [Concomitant]
  14. UNNAMED MEDICATION (TOPICAL) [Concomitant]
  15. PROBIOTIC [Concomitant]
  16. MULTIVITAMIN [Concomitant]
  17. TYLENOL [Concomitant]
  18. CALCTRATE PLUS [Concomitant]
  19. VITAMIN D [Concomitant]
  20. GAUIFENESIN [Concomitant]
  21. FOSAMAX [Concomitant]
  22. LIBRAX [Concomitant]
  23. BENEFIBER [Concomitant]
  24. CENTRUM SILVER [Concomitant]
  25. CENTERIZINE [Concomitant]
  26. CARAC [Concomitant]

REACTIONS (9)
  - Incisional hernia [None]
  - Blood pressure decreased [None]
  - Post procedural complication [None]
  - Impaired healing [None]
  - Colon cancer [None]
  - Large intestine perforation [None]
  - Large intestinal stenosis [None]
  - Diverticulitis [None]
  - Anastomotic complication [None]
